FAERS Safety Report 21969090 (Version 1)
Quarter: 2023Q1

REPORT INFORMATION
  Report Type: Spontaneous
  Country: JP (occurrence: JP)
  Receive Date: 20230208
  Receipt Date: 20230208
  Transmission Date: 20230418
  Serious: Yes (Other)
  Sender: FDA-Public Use
  Company Number: JP-DSJP-DSJ-2023-104639

PATIENT
  Age: 78 Year
  Sex: Female

DRUGS (1)
  1. EDOXABAN TOSYLATE [Suspect]
     Active Substance: EDOXABAN TOSYLATE
     Indication: Product used for unknown indication
     Dosage: 60MG/DAY
     Route: 065

REACTIONS (3)
  - Renal impairment [Not Recovered/Not Resolved]
  - Incorrect dose administered [Unknown]
  - Prescribed overdose [Unknown]
